FAERS Safety Report 5067064-6 (Version None)
Quarter: 2006Q3

REPORT INFORMATION
  Report Type: 
  Country: None (occurrence: None)
  Receive Date: 20060727
  Receipt Date: 20060724
  Transmission Date: 20061208
  Serious: Yes (Hospitalization)
  Sender: FDA-Public Use
  Company Number: 2006-BP-06779RO

PATIENT
  Age: 75 Year
  Sex: Female

DRUGS (2)
  1. PREDNISONE [Suspect]
     Dosage: 1 TABLET DAILY (50 MG), PO
     Route: 048
     Dates: start: 20060602, end: 20060613
  2. PREDNISONE TAB [Suspect]
     Dosage: 1 TABLET DAILY (10 MG), PO
     Route: 048
     Dates: start: 20060602, end: 20060613

REACTIONS (4)
  - LISTLESS [None]
  - PHARMACEUTICAL PRODUCT COMPLAINT [None]
  - SOMNOLENCE [None]
  - THERAPY NON-RESPONDER [None]
